FAERS Safety Report 9977993 (Version 2)
Quarter: 2014Q1

REPORT INFORMATION
  Report Type: Report from Study
  Country: US (occurrence: US)
  Receive Date: 20140306
  Receipt Date: 20140306
  Transmission Date: 20141002
  Serious: No
  Sender: FDA-Public Use
  Company Number: US-ABBVIE-13P-163-1109630-00

PATIENT
  Age: 61 Year
  Sex: Female

DRUGS (15)
  1. HUMIRA [Suspect]
     Indication: PSORIATIC ARTHROPATHY
     Dates: start: 201302
  2. HUMIRA [Suspect]
  3. LYRICA [Concomitant]
     Indication: FIBROMYALGIA
  4. HYDROCODONE [Concomitant]
     Indication: BACK PAIN
     Dosage: 7.5/325MG
  5. HYDROCODONE [Concomitant]
     Indication: FIBROMYALGIA
  6. SINGULAIR [Concomitant]
     Indication: HYPERSENSITIVITY
  7. TOPROL [Concomitant]
     Indication: TACHYCARDIA
  8. BACLOFEN [Concomitant]
     Indication: MUSCLE DISORDER
     Dosage: NIGHTLY
  9. BACLOFEN [Concomitant]
     Indication: MUSCLE SPASMS
  10. XANAX [Concomitant]
     Indication: ILL-DEFINED DISORDER
  11. XANAX [Concomitant]
     Indication: DEPRESSION
  12. RELAFEN [Concomitant]
     Indication: ARTHROPATHY
  13. PRISTIQ [Concomitant]
     Indication: DEPRESSION
  14. VENLAFAXINE [Concomitant]
     Indication: PRODUCT USED FOR UNKNOWN INDICATION
  15. RANITIDINE [Concomitant]
     Indication: GASTROOESOPHAGEAL REFLUX DISEASE

REACTIONS (8)
  - Flatulence [Not Recovered/Not Resolved]
  - Arthralgia [Not Recovered/Not Resolved]
  - Psoriasis [Not Recovered/Not Resolved]
  - Abdominal pain upper [Not Recovered/Not Resolved]
  - Diarrhoea [Recovered/Resolved]
  - Diarrhoea [Not Recovered/Not Resolved]
  - Abdominal pain [Not Recovered/Not Resolved]
  - Muscle spasms [Not Recovered/Not Resolved]
